FAERS Safety Report 6158192-2 (Version None)
Quarter: 2009Q2

REPORT INFORMATION
  Report Type: 
  Country: None (occurrence: None)
  Receive Date: 20090417
  Receipt Date: 20090410
  Transmission Date: 20091009
  Serious: Yes (Other)
  Sender: FDA-Public Use
  Company Number: US-ROCHE-627016

PATIENT
  Sex: Female

DRUGS (2)
  1. PEG-INTERFERON A-2A (RO 25-8310) [Suspect]
     Indication: HEPATITIS C
     Dosage: FORM: PRE-FILLED SYRINGE
     Route: 065
     Dates: start: 20080808
  2. RIBAVIRIN [Suspect]
     Indication: HEPATITIS C
     Route: 065
     Dates: start: 20080808

REACTIONS (11)
  - AMNESIA [None]
  - ARTHROPATHY [None]
  - BLOOD POTASSIUM DECREASED [None]
  - BRONCHITIS CHRONIC [None]
  - DENTAL CARIES [None]
  - EAR INFECTION [None]
  - FUNGAL INFECTION [None]
  - MELANOCYTIC NAEVUS [None]
  - OROPHARYNGEAL BLISTERING [None]
  - RED BLOOD CELL COUNT DECREASED [None]
  - WEIGHT DECREASED [None]
